FAERS Safety Report 10831409 (Version 1)
Quarter: 2015Q1

REPORT INFORMATION
  Report Type: Spontaneous
  Country: US (occurrence: US)
  Receive Date: 20150219
  Receipt Date: 20150219
  Transmission Date: 20150721
  Serious: Yes (Other)
  Sender: FDA-Public Use
  Company Number: US-ABBVIE-14P-163-1194631-00

PATIENT
  Sex: Male

DRUGS (1)
  1. HUMIRA [Suspect]
     Active Substance: ADALIMUMAB
     Indication: FOLLICULITIS
     Dates: end: 2013

REACTIONS (4)
  - Off label use [Unknown]
  - Lupus-like syndrome [Unknown]
  - Folliculitis [Unknown]
  - Arthralgia [Unknown]
